FAERS Safety Report 24594251 (Version 5)
Quarter: 2025Q1

REPORT INFORMATION
  Report Type: Report from Study
  Country: RO (occurrence: RO)
  Receive Date: 20241108
  Receipt Date: 20250110
  Transmission Date: 20250408
  Serious: Yes (Death, Other)
  Sender: PFIZER
  Company Number: RO-ROCHE-10000119424

PATIENT
  Age: 76 Year
  Sex: Male
  Weight: 70 kg

DRUGS (16)
  1. BEVACIZUMAB [Suspect]
     Active Substance: BEVACIZUMAB
     Indication: Hepatocellular carcinoma
     Route: 042
     Dates: start: 20221220
  2. ATEZOLIZUMAB [Suspect]
     Active Substance: ATEZOLIZUMAB
     Indication: Hepatocellular carcinoma
     Route: 042
     Dates: start: 20221220
  3. ARGININE ASPARTATE [Concomitant]
     Active Substance: ARGININE ASPARTATE
     Dates: end: 20241119
  4. DIOSMIN\HESPERIDIN [Concomitant]
     Active Substance: DIOSMIN\HESPERIDIN
     Dosage: 1000 MG, 2X/DAY
     Dates: end: 20241119
  5. ASPIRIN [Concomitant]
     Active Substance: ASPIRIN
     Dosage: 75 MG, 1X/DAY
     Dates: start: 20240328, end: 20241119
  6. FUROSEMIDE [Concomitant]
     Active Substance: FUROSEMIDE
     Dosage: 20 MG, 1X/DAY
     Dates: start: 20240328, end: 20241119
  7. SPIRONOLACTONE [Concomitant]
     Active Substance: SPIRONOLACTONE
     Dosage: 25 MG, 1X/DAY
     Dates: start: 20240328, end: 20241119
  8. CONTROLOC [Concomitant]
     Active Substance: PANTOPRAZOLE SODIUM
     Indication: Prophylaxis
     Dosage: 40 MG, 1X/DAY
     Dates: start: 20240328, end: 20241119
  9. ENTRESTO [Concomitant]
     Active Substance: SACUBITRIL\VALSARTAN
     Dates: start: 20240418, end: 20241119
  10. ENTRESTO [Concomitant]
     Active Substance: SACUBITRIL\VALSARTAN
     Dates: start: 20240418, end: 20241119
  11. DAPAGLIFLOZIN [Concomitant]
     Active Substance: DAPAGLIFLOZIN
     Dosage: UNK UNK, DAILY
     Dates: start: 20240328, end: 20241119
  12. CITRONAC KD [Concomitant]
     Dosage: UNK, 2X/DAY
     Dates: start: 20240620, end: 20241119
  13. SOLUVIT [BIOTIN;CYANOCOBALAMIN;FOLIC ACID;NICOTINAMIDE;PANTOTHENATE SO [Concomitant]
     Dates: start: 20240620, end: 20241119
  14. BISOPROLOL FUMARATE [Concomitant]
     Active Substance: BISOPROLOL FUMARATE
     Dosage: 5 MG
     Dates: start: 20240328, end: 20241119
  15. BISOPROLOL FUMARATE [Concomitant]
     Active Substance: BISOPROLOL FUMARATE
     Dosage: 2 MG, DAILY
     Dates: start: 20240328, end: 20241119
  16. FENTANYL [Concomitant]
     Active Substance: FENTANYL
     Dates: start: 202409, end: 20241119

REACTIONS (2)
  - Death [Fatal]
  - Radius fracture [Recovering/Resolving]

NARRATIVE: CASE EVENT DATE: 20240901
